FAERS Safety Report 16358020 (Version 1)
Quarter: 2019Q2

REPORT INFORMATION
  Report Type: Spontaneous
  Country: BR (occurrence: BR)
  Receive Date: 20190527
  Receipt Date: 20190527
  Transmission Date: 20190711
  Serious: Yes (Death, Hospitalization)
  Sender: FDA-Public Use
  Company Number: PHHY2019BR120339

PATIENT
  Age: 46 Year
  Sex: Female

DRUGS (1)
  1. ZOMETA [Suspect]
     Active Substance: ZOLEDRONIC ACID
     Indication: BREAST CANCER
     Route: 042

REACTIONS (5)
  - Oral infection [Fatal]
  - Osteonecrosis of jaw [Fatal]
  - Exposed bone in jaw [Fatal]
  - Bone lesion [Fatal]
  - Jaw fistula [Fatal]
